FAERS Safety Report 14304922 (Version 1)
Quarter: 2017Q4

REPORT INFORMATION
  Report Type: Spontaneous
  Country: JP (occurrence: JP)
  Receive Date: 20171219
  Receipt Date: 20171219
  Transmission Date: 20180321
  Serious: Yes (Hospitalization, Disabling, Other)
  Sender: FDA-Public Use
  Company Number: JP-OTSUKA-005077

PATIENT
  Age: 26 Year
  Sex: Female
  Weight: 55 kg

DRUGS (21)
  1. OPC-14597 [Suspect]
     Active Substance: CILOSTAZOL
     Dosage: 6 MG, BID
     Route: 048
     Dates: start: 20081105, end: 20081109
  2. VALERIN [Suspect]
     Active Substance: VALPROATE SODIUM
     Dosage: 200 MG, TID
     Route: 048
     Dates: start: 20081014, end: 20081019
  3. RISPERDAL [Suspect]
     Active Substance: RISPERIDONE
     Indication: SCHIZOPHRENIA
     Dosage: 2 ML, QD
     Route: 048
     Dates: start: 20081118, end: 20081121
  4. ZYPREXA [Concomitant]
     Active Substance: OLANZAPINE
     Indication: SCHIZOPHRENIA
     Dosage: 10 MG, QD
     Route: 048
     Dates: start: 20081028, end: 20081105
  5. AKIRIDEN [Concomitant]
     Active Substance: BIPERIDEN
     Indication: PARKINSON^S DISEASE
     Dosage: 1 MG, TID
     Route: 048
     Dates: start: 20081030, end: 20081121
  6. SERENACE [Suspect]
     Active Substance: HALOPERIDOL
     Indication: SCHIZOPHRENIA
     Dosage: 1 MG, TID
     Route: 048
     Dates: start: 20081030, end: 20081110
  7. BENZALIN [Concomitant]
     Active Substance: NITRAZEPAM
     Indication: INSOMNIA
     Dosage: 10 MG, QD
     Route: 048
     Dates: start: 20080318, end: 20081121
  8. SILECE [Concomitant]
     Active Substance: FLUNITRAZEPAM
     Indication: INSOMNIA
     Dosage: 2 MG, QD
     Route: 048
     Dates: start: 20080318, end: 20081121
  9. AKINETON FOR INJECTION [Concomitant]
     Indication: SCHIZOPHRENIA
     Dosage: 1 MG, QD
     Route: 030
     Dates: start: 20081105, end: 20081107
  10. DEPAKENE [Concomitant]
     Active Substance: VALPROIC ACID
     Indication: PRODUCT USED FOR UNKNOWN INDICATION
     Dosage: UNK
     Route: 048
  11. SERENACE [Suspect]
     Active Substance: HALOPERIDOL
     Dosage: 3 MG, TID
     Route: 048
     Dates: start: 20081119, end: 20081121
  12. VALERIN [Suspect]
     Active Substance: VALPROATE SODIUM
     Indication: EPILEPSY
     Dosage: 200 MG, BID
     Route: 048
     Dates: start: 20080225, end: 20081013
  13. OPC-14597 [Suspect]
     Active Substance: CILOSTAZOL
     Dosage: 3 MG, TID
     Route: 048
     Dates: start: 20081027, end: 20081104
  14. VEGETAMIN B [Concomitant]
     Active Substance: CHLORPROMAZINE HYDROCHLORIDE\PHENOBARBITAL\PROMETHAZINE
     Indication: PRODUCT USED FOR UNKNOWN INDICATION
     Dosage: 1 DF, QD
     Route: 048
     Dates: start: 20081020, end: 20081027
  15. OPC-14597 [Suspect]
     Active Substance: CILOSTAZOL
     Indication: SCHIZOPHRENIA
     Dosage: 3 MG, TID
     Route: 048
     Dates: start: 20081014, end: 20081019
  16. OPC-14597 [Suspect]
     Active Substance: CILOSTAZOL
     Dosage: 6 MG, TID
     Route: 048
     Dates: start: 20081020, end: 20081026
  17. OPC-14597 [Suspect]
     Active Substance: CILOSTAZOL
     Dosage: 12 MG, BID
     Route: 048
     Dates: start: 20081110, end: 20081121
  18. VEGETAMIN A [Concomitant]
     Active Substance: CHLORPROMAZINE HYDROCHLORIDE\PHENOBARBITAL\PROMETHAZINE
     Indication: PRODUCT USED FOR UNKNOWN INDICATION
     Dosage: 1 DF, QD
     Route: 048
     Dates: start: 20081027, end: 20081121
  19. ZYPREXA [Concomitant]
     Active Substance: OLANZAPINE
     Indication: INSOMNIA
  20. VALERIN [Suspect]
     Active Substance: VALPROATE SODIUM
     Dosage: 200 MG, BID
     Route: 048
     Dates: start: 20081020, end: 20081121
  21. SERENACE [Concomitant]
     Active Substance: HALOPERIDOL
     Indication: SCHIZOPHRENIA
     Dosage: 5 MG, QD
     Route: 030
     Dates: start: 20081105, end: 20081107

REACTIONS (4)
  - Drug hypersensitivity [Unknown]
  - Pyrexia [Recovered/Resolved]
  - Tremor [Unknown]
  - Liver disorder [Not Recovered/Not Resolved]

NARRATIVE: CASE EVENT DATE: 20081116
